FAERS Safety Report 18313964 (Version 1)
Quarter: 2020Q3

REPORT INFORMATION
  Report Type: Spontaneous
  Country: US (occurrence: US)
  Receive Date: 20200925
  Receipt Date: 20200925
  Transmission Date: 20201103
  Serious: No
  Sender: FDA-Public Use
  Company Number: US-ENDO PHARMACEUTICALS INC-2019-108097

PATIENT
  Sex: Female

DRUGS (2)
  1. THEO?24 [Suspect]
     Active Substance: THEOPHYLLINE ANHYDROUS
     Dosage: 1 DF, DAILY
     Route: 065
  2. THEO?24 [Suspect]
     Active Substance: THEOPHYLLINE ANHYDROUS
     Indication: PRODUCT USED FOR UNKNOWN INDICATION
     Dosage: 2 DF, DAILY
     Route: 065

REACTIONS (1)
  - Intentional product misuse [Unknown]
